FAERS Safety Report 5312061-6 (Version None)
Quarter: 2007Q2

REPORT INFORMATION
  Report Type: 
  Country: None (occurrence: None)
  Receive Date: 20070430
  Receipt Date: 20060619
  Transmission Date: 20071010
  Serious: No
  Sender: FDA-Public Use
  Company Number: 2006UW13020

PATIENT
  Age: 70 Year
  Sex: Female
  Weight: 81.6 kg

DRUGS (2)
  1. NEXIUM [Suspect]
     Indication: GASTROOESOPHAGEAL REFLUX DISEASE
     Route: 048
     Dates: start: 20060401
  2. AVELOX [Suspect]
     Dates: start: 20060619

REACTIONS (4)
  - FATIGUE [None]
  - NASAL CONGESTION [None]
  - PARAESTHESIA [None]
  - SOMNOLENCE [None]
